FAERS Safety Report 5781726-4 (Version None)
Quarter: 2008Q2

REPORT INFORMATION
  Report Type: 
  Country: None (occurrence: None)
  Receive Date: 20080623
  Receipt Date: 20071219
  Transmission Date: 20081010
  Serious: No
  Sender: FDA-Public Use
  Company Number: US-ASTRAZENECA-2007UW28738

PATIENT
  Age: 24 Year
  Sex: Female
  Weight: 59 kg

DRUGS (1)
  1. RHINOCORT [Suspect]
     Indication: SINUSITIS
     Route: 045
     Dates: start: 20071201

REACTIONS (5)
  - DIZZINESS [None]
  - DRUG INEFFECTIVE [None]
  - NASAL DISCOMFORT [None]
  - PRURITUS [None]
  - SINUS HEADACHE [None]
